FAERS Safety Report 5087164-4 (Version None)
Quarter: 2006Q3

REPORT INFORMATION
  Report Type: 
  Country: None (occurrence: None)
  Receive Date: 20060821
  Receipt Date: 20060808
  Transmission Date: 20061208
  Serious: Yes (Hospitalization)
  Sender: FDA-Public Use
  Company Number: 2006097158

PATIENT
  Age: 72 Year
  Sex: Female
  Weight: 53 kg

DRUGS (1)
  1. SUTENT [Suspect]
     Indication: RENAL CELL CARCINOMA STAGE UNSPECIFIED
     Dosage: 50 MG (50 MG, INTERVAL: 28 DAYS), ORAL
     Route: 048
     Dates: start: 20060724

REACTIONS (6)
  - ANOREXIA [None]
  - CYST [None]
  - FATIGUE [None]
  - NAUSEA [None]
  - RENAL FAILURE ACUTE [None]
  - VOMITING [None]
